FAERS Safety Report 6566126-1 (Version None)
Quarter: 2010Q1

REPORT INFORMATION
  Report Type: 
  Country: None (occurrence: None)
  Receive Date: 20100202
  Receipt Date: 20100125
  Transmission Date: 20100710
  Serious: Yes (Other)
  Sender: FDA-Public Use
  Company Number: ES-JNJFOC-20100110444

PATIENT
  Age: 12 Year
  Sex: Female

DRUGS (2)
  1. TAVANIC [Suspect]
     Indication: RESPIRATORY TRACT INFECTION BACTERIAL
     Route: 048
  2. CLAVULANATE POTASSIUM [Suspect]
     Indication: RESPIRATORY TRACT INFECTION BACTERIAL
     Route: 048

REACTIONS (3)
  - HYPERTRANSAMINASAEMIA [None]
  - OFF LABEL USE [None]
  - VOMITING [None]
